FAERS Safety Report 13490870 (Version 1)
Quarter: 2017Q2

REPORT INFORMATION
  Report Type: Spontaneous
  Country: US (occurrence: US)
  Receive Date: 20170427
  Receipt Date: 20170427
  Transmission Date: 20170830
  Serious: No
  Sender: FDA-Public Use
  Company Number: None

PATIENT
  Age: 48 Year
  Sex: Female

DRUGS (2)
  1. PREDNISONE. [Concomitant]
     Active Substance: PREDNISONE
  2. HCG TRIUMPH [Suspect]
     Active Substance: HOMEOPATHICS

REACTIONS (6)
  - Hypertension [None]
  - Wheezing [None]
  - Urticaria [None]
  - Pallor [None]
  - Swollen tongue [None]
  - Dizziness [None]
